FAERS Safety Report 8574497-X (Version None)
Quarter: 2012Q3

REPORT INFORMATION
  Report Type: 
  Country: None (occurrence: None)
  Receive Date: 20120806
  Receipt Date: 20120301
  Transmission Date: 20120928
  Serious: Yes (Other)
  Sender: FDA-Public Use
  Company Number: US-ABBOTT-12P-163-0910364-00

PATIENT
  Sex: Male

DRUGS (3)
  1. DEPAKOTE ER [Suspect]
     Route: 048
     Dates: start: 20120228
  2. DEPAKOTE ER [Suspect]
     Indication: CONVULSION
     Route: 048
     Dates: end: 20111126
  3. DEPAKOTE ER [Suspect]
     Route: 048
     Dates: start: 20111126, end: 20120228

REACTIONS (1)
  - CONVULSION [None]
